FAERS Safety Report 20940226 (Version 1)
Quarter: 2022Q2

REPORT INFORMATION
  Report Type: Report from Study
  Country: KR (occurrence: KR)
  Receive Date: 20220609
  Receipt Date: 20220609
  Transmission Date: 20220721
  Serious: Yes (Hospitalization, Other)
  Sender: FDA-Public Use
  Company Number: KR-JNJFOC-20220601402

PATIENT

DRUGS (1)
  1. REMICADE [Suspect]
     Active Substance: INFLIXIMAB
     Indication: Rheumatoid arthritis
     Route: 042

REACTIONS (8)
  - Pyelonephritis [Unknown]
  - Pneumonia [Unknown]
  - Cellulitis [Unknown]
  - Arthritis bacterial [Unknown]
  - Bacteraemia [Unknown]
  - Pulmonary tuberculosis [Unknown]
  - Herpes zoster [Unknown]
  - Hospitalisation [Unknown]
